FAERS Safety Report 5200057-4 (Version None)
Quarter: 2007Q1

REPORT INFORMATION
  Report Type: 
  Country: None (occurrence: None)
  Receive Date: 20070105
  Receipt Date: 20061225
  Transmission Date: 20070707
  Serious: Yes (Other)
  Sender: FDA-Public Use
  Company Number: JP-JNJFOC-20061206623

PATIENT
  Age: 87 Year
  Sex: Male

DRUGS (5)
  1. ITRIZOLE [Suspect]
     Indication: NAIL TINEA
     Route: 048
  2. LENDORMIN [Suspect]
     Indication: INSOMNIA
     Route: 048
  3. THYRADIN [Concomitant]
     Indication: HYPOTHYROIDISM
     Route: 048
  4. SIGMART [Concomitant]
     Indication: CARDIAC FAILURE
     Route: 048
  5. KAMAG G [Concomitant]
     Indication: CONSTIPATION
     Route: 048

REACTIONS (3)
  - CONDITION AGGRAVATED [None]
  - DEMENTIA [None]
  - SPEECH DISORDER [None]
